FAERS Safety Report 15747090 (Version 1)
Quarter: 2018Q4

REPORT INFORMATION
  Report Type: Spontaneous
  Country: US (occurrence: US)
  Receive Date: 20181220
  Receipt Date: 20181220
  Transmission Date: 20190205
  Serious: Yes (Hospitalization)
  Sender: FDA-Public Use
  Company Number: US-JNJFOC-20181222110

PATIENT
  Sex: Male
  Weight: 85 kg

DRUGS (3)
  1. INVEGA SUSTENNA [Suspect]
     Active Substance: PALIPERIDONE PALMITATE
     Indication: SCHIZOPHRENIA
     Route: 030
     Dates: start: 20181215
  2. INVEGA SUSTENNA [Suspect]
     Active Substance: PALIPERIDONE PALMITATE
     Indication: SCHIZOPHRENIA
     Route: 030
     Dates: end: 20181018
  3. METOPROLOL. [Concomitant]
     Active Substance: METOPROLOL
     Indication: HYPERTENSION
     Route: 065

REACTIONS (4)
  - Incorrect dose administered [Unknown]
  - Hospitalisation [Unknown]
  - Off label use [Unknown]
  - Product dose omission [Unknown]

NARRATIVE: CASE EVENT DATE: 2018
